FAERS Safety Report 22625644 (Version 1)
Quarter: 2023Q2

REPORT INFORMATION
  Report Type: Spontaneous
  Country: CN (occurrence: CN)
  Receive Date: 20230621
  Receipt Date: 20230621
  Transmission Date: 20230721
  Serious: Yes (Death, Life-Threatening, Hospitalization, Other)
  Sender: FDA-Public Use
  Company Number: CN-009507513-2306CHN009786

PATIENT
  Age: 67 Year
  Sex: Male
  Weight: 55 kg

DRUGS (5)
  1. KEYTRUDA [Suspect]
     Active Substance: PEMBROLIZUMAB
     Indication: Gastric cancer
     Dosage: 200 MG, ONCE
     Route: 041
     Dates: start: 20220610, end: 20220610
  2. DISITAMAB VEDOTIN [Suspect]
     Active Substance: DISITAMAB VEDOTIN
     Indication: Gastric cancer
     Dosage: 150 MG, ONCE
     Route: 041
     Dates: start: 20220611, end: 20220611
  3. SODIUM CHLORIDE [Concomitant]
     Active Substance: SODIUM CHLORIDE
     Indication: Gastric cancer
     Dosage: 100 ML, ONCE
     Route: 041
     Dates: start: 20220610, end: 20220610
  4. SODIUM CHLORIDE [Concomitant]
     Active Substance: SODIUM CHLORIDE
     Dosage: 250 ML, ONCE
     Route: 041
     Dates: start: 20220611, end: 20220611
  5. STERILE WATER FOR INJECTION [Concomitant]
     Active Substance: WATER
     Indication: Gastric cancer
     Dosage: 10 ML, ONCE
     Route: 041
     Dates: start: 20220611, end: 20220611

REACTIONS (9)
  - Toxic epidermal necrolysis [Fatal]
  - Malignant neoplasm progression [Fatal]
  - Septic shock [Unknown]
  - Cardiac failure [Unknown]
  - Respiratory failure [Unknown]
  - Pneumonia [Unknown]
  - Gastrointestinal haemorrhage [Unknown]
  - Full blood count decreased [Unknown]
  - Product use in unapproved indication [Unknown]

NARRATIVE: CASE EVENT DATE: 20220701
